FAERS Safety Report 4310286-X (Version None)
Quarter: 2004Q1

REPORT INFORMATION
  Report Type: 
  Country: None (occurrence: None)
  Receive Date: 20040303
  Receipt Date: 20040223
  Transmission Date: 20041129
  Serious: Yes (Hospitalization)
  Sender: FDA-Public Use
  Company Number: DE-BRISTOL-MYERS SQUIBB COMPANY-12516688

PATIENT
  Age: 66 Year
  Sex: Male
  Weight: 72 kg

DRUGS (6)
  1. PRAVASIN [Suspect]
     Route: 048
  2. SANDIMMUNE [Suspect]
     Indication: GLOMERULONEPHRITIS MEMBRANOUS
     Route: 048
     Dates: start: 20040126, end: 20040202
  3. ALLOPURINOL [Suspect]
     Route: 048
  4. VESDIL [Suspect]
     Route: 048
  5. ATACAND [Suspect]
     Route: 048
  6. NEBILET [Suspect]
     Route: 048

REACTIONS (3)
  - CONFUSIONAL STATE [None]
  - HYPERTENSIVE CRISIS [None]
  - LEUKOENCEPHALOPATHY [None]
